FAERS Safety Report 9939144 (Version 1)
Quarter: 2014Q1

REPORT INFORMATION
  Report Type: Spontaneous
  Country: US (occurrence: US)
  Receive Date: 20140303
  Receipt Date: 20140303
  Transmission Date: 20141002
  Serious: Yes (Other)
  Sender: FDA-Public Use
  Company Number: US-ASTELLAS-2014US002018

PATIENT
  Age: 83 Year
  Sex: Male

DRUGS (1)
  1. MYRBETRIQ [Suspect]
     Indication: NOCTURIA
     Dosage: 1 DF, UID/QD
     Route: 048
     Dates: start: 201401

REACTIONS (4)
  - Off label use [Unknown]
  - Renal failure acute [Unknown]
  - Urinary tract infection [Unknown]
  - Urinary retention [Unknown]
